FAERS Safety Report 23416777 (Version 1)
Quarter: 2024Q1

REPORT INFORMATION
  Report Type: Spontaneous
  Country: US (occurrence: US)
  Receive Date: 20240118
  Receipt Date: 20240118
  Transmission Date: 20240409
  Serious: No
  Sender: FDA-Public Use
  Company Number: US-PFIZER INC-202400015062

PATIENT
  Age: 50 Year
  Sex: Male
  Weight: 167.83 kg

DRUGS (3)
  1. PAXLOVID [Interacting]
     Active Substance: NIRMATRELVIR\RITONAVIR
     Dosage: 300MG FOIL PACK; THINKS TABLETS, 3 PILLS TWICE DAILY
     Dates: start: 20240112, end: 20240113
  2. OXCARBAZEPINE [Interacting]
     Active Substance: OXCARBAZEPINE
     Dosage: 300 MG, 2X/DAY
  3. TAMSULOSIN [Concomitant]
     Active Substance: TAMSULOSIN
     Indication: Micturition disorder
     Dosage: EVERY EVENING, 0.4MG

REACTIONS (5)
  - Drug interaction [Unknown]
  - Euphoric mood [Unknown]
  - Incontinence [Not Recovered/Not Resolved]
  - Blood glucose increased [Unknown]
  - Blood creatinine increased [Unknown]

NARRATIVE: CASE EVENT DATE: 20240113
